FAERS Safety Report 5087416-8 (Version None)
Quarter: 2006Q3

REPORT INFORMATION
  Report Type: 
  Country: None (occurrence: None)
  Receive Date: 20060824
  Receipt Date: 20060823
  Transmission Date: 20061208
  Serious: Yes (Other)
  Sender: FDA-Public Use
  Company Number: GB-RB-3770-2006

PATIENT
  Sex: Male

DRUGS (1)
  1. BUPRENORPHINE HCL [Suspect]
     Indication: DRUG USE FOR UNKNOWN INDICATION
     Dosage: DOSAGE UNKNOWN
     Route: 055
     Dates: end: 20060601

REACTIONS (3)
  - DRUG HYPERSENSITIVITY [None]
  - INTENTIONAL DRUG MISUSE [None]
  - SEPSIS [None]
